FAERS Safety Report 23456794 (Version 2)
Quarter: 2024Q1

REPORT INFORMATION
  Report Type: Report from Study
  Country: US (occurrence: US)
  Receive Date: 20240130
  Receipt Date: 20240205
  Transmission Date: 20240410
  Serious: Yes (Hospitalization)
  Sender: FDA-Public Use
  Company Number: US-BAYER-2024A013587

PATIENT
  Age: 82 Year
  Sex: Male
  Weight: 73.923 kg

DRUGS (20)
  1. ADEMPAS [Suspect]
     Active Substance: RIOCIGUAT
     Indication: Pulmonary arterial hypertension
     Dosage: UNK
     Dates: start: 20210506
  2. ADEMPAS [Suspect]
     Active Substance: RIOCIGUAT
     Indication: Pulmonary arterial hypertension
     Dosage: 2.5 MG, TID
     Route: 048
  3. METOPROLOL TARTRATE [Concomitant]
     Active Substance: METOPROLOL TARTRATE
  4. OMEPRAZOLE [Concomitant]
     Active Substance: OMEPRAZOLE
  5. METOLAZONE [Concomitant]
     Active Substance: METOLAZONE
  6. ELIQUIS [Concomitant]
     Active Substance: APIXABAN
  7. SODIUM CHLORIDE [Concomitant]
     Active Substance: SODIUM CHLORIDE
  8. PANTOPRAZOLE SODIUM ANHYDROUS [Concomitant]
     Active Substance: PANTOPRAZOLE SODIUM ANHYDROUS
  9. VELETRI [Concomitant]
     Active Substance: EPOPROSTENOL
  10. SIMBRINZA [Concomitant]
     Active Substance: BRIMONIDINE TARTRATE\BRINZOLAMIDE
  11. CLOPIDOGREL [Concomitant]
     Active Substance: CLOPIDOGREL BISULFATE
  12. POTASSIUM CHLORIDE [Concomitant]
     Active Substance: POTASSIUM CHLORIDE
  13. URSODIOL [Concomitant]
     Active Substance: URSODIOL
  14. CHOLESTYRAMINE [Concomitant]
     Active Substance: CHOLESTYRAMINE
  15. IRON [Concomitant]
     Active Substance: IRON
  16. OXYGEN [Concomitant]
     Active Substance: OXYGEN
  17. FUROSEMIDE [Concomitant]
     Active Substance: FUROSEMIDE
  18. LUMIGAN [Concomitant]
     Active Substance: BIMATOPROST
  19. INNO.N STERILE WATER FOR INJ. [Concomitant]
  20. SODIUM CHLORIDE [Concomitant]
     Active Substance: SODIUM CHLORIDE

REACTIONS (3)
  - Dyspnoea [None]
  - Fall [None]
  - Lumbar vertebral fracture [None]

NARRATIVE: CASE EVENT DATE: 20240120
